FAERS Safety Report 6512845-2 (Version None)
Quarter: 2009Q4

REPORT INFORMATION
  Report Type: 
  Country: None (occurrence: None)
  Receive Date: 20091222
  Receipt Date: 20091215
  Transmission Date: 20100525
  Serious: Yes (Other)
  Sender: FDA-Public Use
  Company Number: GB-GILEAD-2009-0026019

PATIENT
  Sex: Male

DRUGS (6)
  1. ATRIPLA [Suspect]
     Indication: HIV INFECTION
  2. ATAZANAVIR [Concomitant]
     Indication: HIV INFECTION
  3. ABACAVIR [Concomitant]
     Indication: HIV INFECTION
  4. RITONAVIR [Concomitant]
     Indication: HIV INFECTION
  5. EFAVIRENZ [Concomitant]
     Indication: HIV INFECTION
  6. KALETRA [Concomitant]
     Indication: HIV INFECTION

REACTIONS (3)
  - ABNORMAL DREAMS [None]
  - DIARRHOEA [None]
  - MYOCARDIAL INFARCTION [None]
